FAERS Safety Report 9507607 (Version 1)
Quarter: 2013Q3

REPORT INFORMATION
  Report Type: Spontaneous
  Country: JP (occurrence: JP)
  Receive Date: 20130909
  Receipt Date: 20130909
  Transmission Date: 20140515
  Serious: No
  Sender: FDA-Public Use
  Company Number: JP-ELI_LILLY_AND_COMPANY-JP201309000066

PATIENT
  Sex: Female

DRUGS (2)
  1. ZYPREXA [Suspect]
     Dosage: 2.5 MG, QD
  2. ZYPREXA [Suspect]
     Dosage: 5 MG, QD

REACTIONS (3)
  - Menstrual disorder [Unknown]
  - Weight increased [Unknown]
  - Somnolence [Unknown]
